FAERS Safety Report 7955736-2 (Version None)
Quarter: 2011Q4

REPORT INFORMATION
  Report Type: 
  Country: None (occurrence: None)
  Receive Date: 20111204
  Receipt Date: 20111115
  Transmission Date: 20120403
  Serious: Yes (Hospitalization)
  Sender: FDA-Public Use
  Company Number: PHHO2011US019315

PATIENT
  Sex: Female

DRUGS (5)
  1. NITRATES [Concomitant]
  2. NOVOLOG [Suspect]
     Indication: DIABETES MELLITUS
     Dosage: 4 IU
  3. LOPRESSOR [Suspect]
     Indication: HYPERTENSION
  4. LEVEMIR [Suspect]
     Indication: DIABETES MELLITUS
     Dosage: 18 IU
  5. DIURETICS [Concomitant]

REACTIONS (1)
  - PRESYNCOPE [None]
